FAERS Safety Report 8242545-2 (Version None)
Quarter: 2012Q1

REPORT INFORMATION
  Report Type: 
  Country: None (occurrence: None)
  Receive Date: 20120329
  Receipt Date: 20120320
  Transmission Date: 20120608
  Serious: Yes (Other)
  Sender: FDA-Public Use
  Company Number: PHFR2012GB001877

PATIENT
  Sex: Female

DRUGS (1)
  1. ESTRADERM [Suspect]
     Dosage: 25 MCG, EVERY 3-4 DAYS
     Route: 062

REACTIONS (2)
  - PALPITATIONS [None]
  - HOT FLUSH [None]
